FAERS Safety Report 12170755 (Version 1)
Quarter: 2016Q1

REPORT INFORMATION
  Report Type: Spontaneous
  Country: PL (occurrence: PL)
  Receive Date: 20160311
  Receipt Date: 20160311
  Transmission Date: 20160526
  Serious: Yes (Hospitalization, Other)
  Sender: FDA-Public Use
  Company Number: PL-VIFOR (INTERNATIONAL) INC.-VIT-2016-01154

PATIENT
  Age: 30 Year
  Sex: Male
  Weight: 67 kg

DRUGS (11)
  1. MIRCERA [Suspect]
     Active Substance: METHOXY POLYETHYLENE GLYCOL-EPOETIN BETA
     Route: 042
     Dates: start: 20150616
  2. ARANESP [Suspect]
     Active Substance: DARBEPOETIN ALFA
     Indication: NEPHROGENIC ANAEMIA
     Route: 042
     Dates: start: 20120301
  3. CALCIUM CARBONICUM [Concomitant]
     Indication: HYPOCALCAEMIA
     Dates: start: 2005
  4. MIRCERA [Suspect]
     Active Substance: METHOXY POLYETHYLENE GLYCOL-EPOETIN BETA
     Indication: NEPHROGENIC ANAEMIA
     Route: 042
     Dates: start: 20110301, end: 20110301
  5. NORVASC [Concomitant]
     Active Substance: AMLODIPINE BESYLATE
     Indication: HYPERTENSION
     Route: 048
     Dates: start: 2011
  6. BISOCARD [Concomitant]
     Active Substance: BISOPROLOL
     Indication: HYPERTENSION
     Route: 048
     Dates: start: 2005
  7. IPOREL [Concomitant]
     Active Substance: CLONIDINE
     Indication: HYPERTENSION
     Route: 048
     Dates: start: 2005
  8. MIRCERA [Suspect]
     Active Substance: METHOXY POLYETHYLENE GLYCOL-EPOETIN BETA
     Route: 042
     Dates: start: 20160225
  9. MIMPARA [Concomitant]
     Active Substance: CINACALCET HYDROCHLORIDE
     Indication: HYPERPARATHYROIDISM SECONDARY
     Route: 048
  10. ALFADIOL [Concomitant]
     Active Substance: ALFACALCIDOL
     Indication: HYPERPARATHYROIDISM SECONDARY
     Route: 048
  11. DOXANORM [Concomitant]
     Indication: HYPERTENSION
     Dates: start: 2011

REACTIONS (5)
  - Drug ineffective [Unknown]
  - Haemoglobin decreased [Unknown]
  - Haemolysis [Unknown]
  - Aplasia pure red cell [Not Recovered/Not Resolved]
  - Transfusion reaction [Unknown]

NARRATIVE: CASE EVENT DATE: 20141223
